FAERS Safety Report 23692155 (Version 2)
Quarter: 2024Q2

REPORT INFORMATION
  Report Type: Spontaneous
  Country: ES (occurrence: ES)
  Receive Date: 20240401
  Receipt Date: 20240412
  Transmission Date: 20240716
  Serious: Yes (Other)
  Sender: FDA-Public Use
  Company Number: ES-TEVA-VS-3176734

PATIENT
  Age: 77 Year
  Sex: Female

DRUGS (2)
  1. MYCOPHENOLATE MOFETIL [Suspect]
     Active Substance: MYCOPHENOLATE MOFETIL
     Indication: Immunosuppressant drug therapy
     Dosage: RECEIVING FOR MORE THAN 5 YEARS
     Route: 065
  2. RAPAMYCIN [Suspect]
     Active Substance: SIROLIMUS
     Indication: Immunosuppressant drug therapy
     Dosage: RECEIVING FOR MORE THAN 5 YEARS
     Route: 065

REACTIONS (1)
  - Cutaneous vasculitis [Recovered/Resolved]
